FAERS Safety Report 6637095-0 (Version None)
Quarter: 2010Q1

REPORT INFORMATION
  Report Type: 
  Country: None (occurrence: None)
  Receive Date: 20100316
  Receipt Date: 20100305
  Transmission Date: 20100710
  Serious: Yes (Disabling)
  Sender: FDA-Public Use
  Company Number: FR-WYE-H04616708

PATIENT
  Sex: Male

DRUGS (6)
  1. CORDARONE [Suspect]
     Indication: ATRIAL FIBRILLATION
     Route: 048
     Dates: start: 20050101, end: 20080505
  2. CORDARONE [Suspect]
     Indication: ARRHYTHMIA
  3. PREVISCAN [Concomitant]
     Indication: CARDIAC FAILURE
     Route: 048
     Dates: start: 20070101
  4. KALEORID [Concomitant]
     Indication: CARDIAC FAILURE
     Route: 048
     Dates: start: 20070101
  5. NEBIVOLOL HCL [Concomitant]
     Indication: CARDIAC FAILURE
     Route: 048
     Dates: start: 20070101
  6. LASILIX [Concomitant]
     Indication: CARDIAC FAILURE
     Route: 048
     Dates: start: 20070101

REACTIONS (3)
  - MYALGIA [None]
  - PERIPHERAL MOTOR NEUROPATHY [None]
  - PERIPHERAL SENSORY NEUROPATHY [None]
